FAERS Safety Report 7965017-9 (Version None)
Quarter: 2011Q4

REPORT INFORMATION
  Report Type: 
  Country: None (occurrence: None)
  Receive Date: 20111208
  Receipt Date: 20111118
  Transmission Date: 20120403
  Serious: Yes (Other)
  Sender: FDA-Public Use
  Company Number: CA-BAYER-2011-004855

PATIENT
  Age: 67 Year
  Sex: Female
  Weight: 67.8 kg

DRUGS (19)
  1. SORAFENIB (RAF KINASE INHIBITOR) [Suspect]
     Indication: HEPATIC NEOPLASM MALIGNANT
     Dosage: 400 MG, BID
     Route: 048
     Dates: start: 20100210, end: 20100228
  2. NORVASC [Concomitant]
     Indication: HYPERTENSION
     Dosage: 5 MG, UNK
     Dates: start: 19930101
  3. MULTI-VITAMIN [Concomitant]
     Indication: SUPPLEMENTATION THERAPY
     Dosage: 1 DF, UNK
     Dates: start: 20101112
  4. BLINDED SORAFENIB (RAF KINASE INHIBITOR) [Suspect]
     Indication: HEPATIC NEOPLASM MALIGNANT
     Dosage: 150 MG, QD
     Route: 048
     Dates: start: 20100211, end: 20100228
  5. SEROQUEL [Concomitant]
     Indication: SLEEP DISORDER THERAPY
     Dosage: 25 MG, UNK
     Dates: start: 20050101
  6. FUCIDIN CREAM [Concomitant]
     Indication: STOMATITIS
     Dosage: 2 %, PRN
     Dates: start: 20100228, end: 20100312
  7. LUBRIDERM [Concomitant]
     Indication: RASH
     Dosage: UNK UNK, PRN
     Dates: start: 20100222, end: 20100505
  8. AVEENO [Concomitant]
     Indication: DRY SKIN PROPHYLAXIS
     Dosage: UNK UNK, TID, PRN
     Dates: start: 20100420
  9. CELEXA [Concomitant]
     Indication: DEPRESSION
     Dosage: 20 MG, UNK
     Dates: start: 20050101
  10. NAPROXEN (ALEVE) [Concomitant]
     Indication: BACK PAIN
     Dosage: 1 DF, UNK
     Dates: start: 20100706
  11. OMNIPAQUE 140 [Concomitant]
     Indication: SCAN WITH CONTRAST
     Dosage: 120 ML, INTERMITTENT
     Dates: start: 20100205
  12. BLINDED SORAFENIB (RAF KINASE INHIBITOR) [Suspect]
     Dosage: 100 MG, QD
     Route: 048
     Dates: start: 20100323, end: 20100328
  13. UREMOL [Concomitant]
     Indication: RASH
     Dosage: UNK UNK, PRN
     Dates: start: 20100222, end: 20100420
  14. VITAMIN D [Concomitant]
     Indication: SUPPLEMENTATION THERAPY
     Dosage: 1000 U, UNK
     Dates: start: 20101112
  15. SORAFENIB (RAF KINASE INHIBITOR) [Suspect]
     Dosage: 400 MG, BID
     Route: 048
     Dates: start: 20100323, end: 20100328
  16. FUCIDIN CREAM [Concomitant]
     Dosage: 2%
     Dates: start: 20100318, end: 20100421
  17. NAPROXEN (ALEVE) [Concomitant]
     Indication: PALMAR-PLANTAR ERYTHRODYSAESTHESIA SYNDROME
     Dosage: 1 DF, UNK
     Dates: start: 20100329, end: 20100405
  18. LOVAZA [Concomitant]
     Indication: SUPPLEMENTATION THERAPY
     Dosage: 1 DF, UNK
     Dates: start: 20101112
  19. TEA TREE OIL [Concomitant]
     Indication: PRURITUS
     Dosage: DAB SHAMPOO, PRN
     Dates: start: 20100309

REACTIONS (1)
  - PERIPHERAL SENSORY NEUROPATHY [None]
